FAERS Safety Report 22864540 (Version 5)
Quarter: 2023Q4

REPORT INFORMATION
  Report Type: Spontaneous
  Country: CA (occurrence: CA)
  Receive Date: 20230825
  Receipt Date: 20231229
  Transmission Date: 20240110
  Serious: Yes (Other)
  Sender: FDA-Public Use
  Company Number: CA-CELLTRION INC.-2023CA010958

PATIENT

DRUGS (20)
  1. INFLECTRA [Suspect]
     Active Substance: INFLIXIMAB-DYYB
     Indication: Sarcoidosis
     Dosage: 250 MG, INDUCTION WEEKS 0, 2, 6 MAINTENANCE Q 8 WEEKS (FIRST TREATMENT)
     Route: 042
     Dates: start: 20230705
  2. INFLECTRA [Suspect]
     Active Substance: INFLIXIMAB-DYYB
     Dosage: 250 MG, WEEK 2
     Route: 042
     Dates: start: 20230721
  3. INFLECTRA [Suspect]
     Active Substance: INFLIXIMAB-DYYB
     Dosage: 250 MG, INDUCTION WEEKS 0, 2, 6 MAINTENANCE Q 8 WEEKS (3 WEEKS 6 DAYS, W6)
     Route: 042
     Dates: start: 20230817
  4. INFLECTRA [Suspect]
     Active Substance: INFLIXIMAB-DYYB
     Dosage: 250 MG, 10 WEEKS (SUPPOSED TO RECEIVE EVERY 8 WEEKS)
     Route: 042
     Dates: start: 20231026
  5. INFLECTRA [Suspect]
     Active Substance: INFLIXIMAB-DYYB
     Dosage: 250 MG, EVERY 4 WEEKS (AFTER 7 WEEKS AND 6 DAYS)
     Route: 042
     Dates: start: 20231220
  6. ALENDRONATE [Concomitant]
     Active Substance: ALENDRONATE SODIUM
     Dosage: 1 DF
  7. BACLOFEN [Concomitant]
     Active Substance: BACLOFEN
     Dosage: 1 DF
  8. CALCIUM [Concomitant]
     Active Substance: CALCIUM
     Dosage: 1 DF
  9. ESCITALOPRAM [Concomitant]
     Active Substance: ESCITALOPRAM OXALATE
     Dosage: 1 DF
  10. FOLIC ACID [Concomitant]
     Active Substance: FOLIC ACID
     Dosage: 1 DF
  11. HYDROXYMETHYL CELLULOSE [Concomitant]
     Active Substance: HYDROXYMETHYL CELLULOSE
     Dosage: 1 DF, 2X/DAY (HYDROXPMETHYL DEX 1 GTT BOTH EYES BID)
     Route: 047
  12. LEVOTHYROXINE [Concomitant]
     Active Substance: LEVOTHYROXINE
     Dosage: 1 DF
  13. METAMUCIL [Concomitant]
     Active Substance: PLANTAGO SEED
     Dosage: 1 DF
  14. FISH OIL [Concomitant]
     Active Substance: FISH OIL
     Dosage: 1 DF
  15. PREDNISONE [Concomitant]
     Active Substance: PREDNISONE
     Dosage: 1 DF
  16. RABEPRAZOLE [Concomitant]
     Active Substance: RABEPRAZOLE
     Dosage: 1 DF
  17. SEPTRA [Concomitant]
     Active Substance: SULFAMETHOXAZOLE\TRIMETHOPRIM
     Dosage: 1 DF
  18. VALACYCLOVIR [Concomitant]
     Active Substance: VALACYCLOVIR HYDROCHLORIDE
     Dosage: 1 DF
  19. VITAMIN B12 [Concomitant]
     Active Substance: CYANOCOBALAMIN
     Dosage: 1 DF
  20. CHOLECALCIFEROL [Concomitant]
     Active Substance: CHOLECALCIFEROL
     Dosage: 1 DF

REACTIONS (13)
  - Pelvic fracture [Not Recovered/Not Resolved]
  - Chest discomfort [Recovered/Resolved]
  - Rhinorrhoea [Unknown]
  - Sneezing [Unknown]
  - Pelvic pain [Not Recovered/Not Resolved]
  - Chest discomfort [Recovered/Resolved]
  - Infusion site reaction [Unknown]
  - Somnolence [Unknown]
  - Fatigue [Unknown]
  - Palpitations [Recovering/Resolving]
  - Urinary tract infection [Recovered/Resolved]
  - Off label use [Unknown]
  - Inappropriate schedule of product administration [Unknown]

NARRATIVE: CASE EVENT DATE: 20230701
